FAERS Safety Report 24154228 (Version 4)
Quarter: 2025Q4

REPORT INFORMATION
  Report Type: Report from Study
  Country: CA (occurrence: CA)
  Receive Date: 20240730
  Receipt Date: 20251021
  Transmission Date: 20260117
  Serious: Yes (Other)
  Sender: JOHNSON AND JOHNSON
  Company Number: CA-JNJFOC-20240763913

PATIENT
  Age: 69 Year
  Sex: Male
  Weight: 84 kg

DRUGS (3)
  1. STELARA [Suspect]
     Active Substance: USTEKINUMAB
     Indication: Crohn^s disease
     Route: 058
  2. STELARA [Suspect]
     Active Substance: USTEKINUMAB
     Route: 058
  3. STELARA [Suspect]
     Active Substance: USTEKINUMAB
     Route: 058

REACTIONS (5)
  - Prostate cancer stage I [Unknown]
  - Wound infection [Recovering/Resolving]
  - Thermal burn [Recovering/Resolving]
  - Chest pain [Unknown]
  - Diarrhoea [Unknown]

NARRATIVE: CASE EVENT DATE: 20240101
